FAERS Safety Report 8956247 (Version 1)
Quarter: 2012Q4

REPORT INFORMATION
  Report Type: 
  Country: CN (occurrence: CN)
  Receive Date: 20121210
  Receipt Date: 20121210
  Transmission Date: 20130627
  Serious: Yes (Other)
  Sender: FDA-Public Use
  Company Number: CN-BAYER-2012-128149

PATIENT
  Age: 83 Year
  Sex: Male
  Weight: 105 kg

DRUGS (4)
  1. GLUCOBAY [Suspect]
     Dosage: 50 mg, TID
     Route: 048
     Dates: start: 20060102, end: 20090131
  2. AMLODIPINE BESYLATE [Concomitant]
     Dosage: UNK
     Dates: start: 20080902
  3. BENAZEPRIL HYDROCHLORIDE [Concomitant]
     Dosage: UNK
     Dates: start: 20080902
  4. SPIRONOLACTONE [Concomitant]
     Dosage: UNK
     Dates: start: 20080902

REACTIONS (1)
  - Hyperkalaemia [Recovering/Resolving]
